FAERS Safety Report 18057554 (Version 1)
Quarter: 2020Q3

REPORT INFORMATION
  Report Type: Spontaneous
  Country: US (occurrence: US)
  Receive Date: 20200722
  Receipt Date: 20200722
  Transmission Date: 20201103
  Serious: No
  Sender: FDA-Public Use
  Company Number: US-EMD SERONO-9175872

PATIENT
  Sex: Female

DRUGS (1)
  1. REBIF [Suspect]
     Active Substance: INTERFERON BETA-1A
     Indication: PRODUCT USED FOR UNKNOWN INDICATION
     Dates: end: 20200605

REACTIONS (5)
  - Rash [Unknown]
  - Injection site erythema [Unknown]
  - Nausea [Unknown]
  - Injection site discolouration [Unknown]
  - Injection site swelling [Unknown]
